FAERS Safety Report 21389820 (Version 3)
Quarter: 2023Q2

REPORT INFORMATION
  Report Type: Report from Study
  Country: BR (occurrence: BR)
  Receive Date: 20220929
  Receipt Date: 20230411
  Transmission Date: 20230722
  Serious: Yes (Hospitalization, Other)
  Sender: FDA-Public Use
  Company Number: BR-CELLTRION INC.-2022BR015794

PATIENT

DRUGS (8)
  1. INFLIXIMAB [Suspect]
     Active Substance: INFLIXIMAB
     Indication: Colitis ulcerative
     Dosage: 100 MILLIGRAM, 3 AMPOULES EVERY 2 MONTHS VIA ENDOVENOUS ROUTE
     Route: 042
     Dates: start: 20220926
  2. INFLIXIMAB [Suspect]
     Active Substance: INFLIXIMAB
     Dosage: 3 AMPOULES EVERY 4 WEEKS
     Route: 042
  3. INFLIXIMAB [Suspect]
     Active Substance: INFLIXIMAB
     Indication: Colitis ulcerative
     Dosage: FIRST INFUSION WAS IN WEEK 0 WITH 3 AMPOULES
     Dates: start: 20220815
  4. INFLIXIMAB [Suspect]
     Active Substance: INFLIXIMAB
     Dosage: ANOTHER ONE AFTER 15 DAYS WITH 3 AMPOULES
     Dates: start: 20220826
  5. AZATHIOPRINE [Concomitant]
     Active Substance: AZATHIOPRINE
     Indication: Colitis ulcerative
     Dosage: 1 PILL PER DAY
     Route: 048
     Dates: start: 20220916
  6. CALCIUM\VITAMIN D [Concomitant]
     Active Substance: CALCIUM\VITAMIN D
     Indication: Nutritional supplementation
     Dosage: 2 PILLS PER DAY (500 MG AND 400 MG)
     Route: 048
     Dates: start: 20220916
  7. IRON POLYMALTOSE [Concomitant]
     Active Substance: IRON POLYMALTOSE
     Indication: Anaemia
     Dosage: 1 AMPOULE EVERY 2 DAYS VIA ENDOVENOUS ROUTE; STOP: WILL MAKE 6 AMPOULES
     Route: 042
     Dates: start: 20220917
  8. IRON POLYMALTOSE [Concomitant]
     Active Substance: IRON POLYMALTOSE
     Dosage: 1 AMPOULE EVERY 3 DAYS
     Route: 042

REACTIONS (10)
  - Colitis ulcerative [Not Recovered/Not Resolved]
  - Diarrhoea [Recovering/Resolving]
  - Haemorrhage [Recovering/Resolving]
  - Anaemia [Recovering/Resolving]
  - Asthenia [Recovering/Resolving]
  - Pain [Recovering/Resolving]
  - Condition aggravated [Not Recovered/Not Resolved]
  - Therapy interrupted [Unknown]
  - Drug ineffective [Unknown]
  - Off label use [Unknown]
